FAERS Safety Report 7609825-2 (Version None)
Quarter: 2011Q3

REPORT INFORMATION
  Report Type: 
  Country: None (occurrence: None)
  Receive Date: 20110714
  Receipt Date: 20110303
  Transmission Date: 20111222
  Serious: Yes (Hospitalization, Other)
  Sender: FDA-Public Use
  Company Number: IE-ROXANE LABORATORIES, INC.-2011-DE-01498GD

PATIENT
  Age: 24 Year
  Sex: Female

DRUGS (1)
  1. CODEINE SULFATE [Suspect]
     Dosage: LARGE AMOUNTS
     Route: 048

REACTIONS (5)
  - ABDOMINAL PAIN LOWER [None]
  - VOMITING [None]
  - SUBSTANCE ABUSE [None]
  - INFECTIOUS PERITONITIS [None]
  - URINARY BLADDER RUPTURE [None]
